FAERS Safety Report 7452045-5 (Version None)
Quarter: 2011Q2

REPORT INFORMATION
  Report Type: 
  Country: None (occurrence: None)
  Receive Date: 20110425
  Receipt Date: 20110407
  Transmission Date: 20111010
  Serious: Yes (Hospitalization)
  Sender: FDA-Public Use
  Company Number: 030969

PATIENT
  Sex: Male
  Weight: 47.6 kg

DRUGS (11)
  1. LEVAQUIN [Concomitant]
  2. MERCAPTOPURINE [Concomitant]
  3. PERCOCET [Concomitant]
  4. PREDNISONE TAB [Concomitant]
  5. CLONAZEPAM [Concomitant]
  6. CIMZIA [Suspect]
     Indication: CROHN'S DISEASE
     Dosage: SEE IMAGE
     Route: 058
     Dates: start: 20110405
  7. CIMZIA [Suspect]
     Indication: CROHN'S DISEASE
     Dosage: SEE IMAGE
     Route: 058
     Dates: start: 20110225
  8. CIMZIA [Suspect]
     Indication: CROHN'S DISEASE
     Dosage: SEE IMAGE
     Route: 058
     Dates: start: 20100326
  9. CIMZIA [Suspect]
     Indication: CROHN'S DISEASE
     Dosage: SEE IMAGE
     Route: 058
     Dates: start: 20110121
  10. CIMZIA [Suspect]
     Indication: CROHN'S DISEASE
     Dosage: SEE IMAGE
     Route: 058
     Dates: start: 20100629, end: 20101213
  11. CIMZIA [Suspect]
     Indication: CROHN'S DISEASE
     Dosage: SEE IMAGE
     Route: 058
     Dates: start: 20110114

REACTIONS (6)
  - PNEUMONIA [None]
  - INFLAMMATION [None]
  - EOSINOPHILIC OESOPHAGITIS [None]
  - HIATUS HERNIA [None]
  - COLITIS [None]
  - COELIAC DISEASE [None]
